FAERS Safety Report 15229304 (Version 4)
Quarter: 2018Q3

REPORT INFORMATION
  Report Type: Spontaneous
  Country: US (occurrence: US)
  Receive Date: 20180801
  Receipt Date: 20180920
  Transmission Date: 20181010
  Serious: Yes (Disabling, Other)
  Sender: FDA-Public Use
  Company Number: US-009507513-1807USA010641

PATIENT
  Age: 16 Year
  Sex: Female
  Weight: 83.91 kg

DRUGS (2)
  1. NEXPLANON [Suspect]
     Active Substance: ETONOGESTREL
     Indication: CONTRACEPTION
     Dosage: LEFT ARM
     Route: 059
     Dates: start: 20180503, end: 20180720
  2. BACTRIM [Suspect]
     Active Substance: SULFAMETHOXAZOLE\TRIMETHOPRIM

REACTIONS (9)
  - Cellulitis [Recovered/Resolved]
  - Device breakage [Recovered/Resolved]
  - Implant site pain [Unknown]
  - Complication of device removal [Recovered/Resolved]
  - Headache [Unknown]
  - Dyspnoea [Unknown]
  - Vomiting [Unknown]
  - Implant site erythema [Unknown]
  - Dizziness [Unknown]

NARRATIVE: CASE EVENT DATE: 20180719
